FAERS Safety Report 9402873 (Version 1)
Quarter: 2013Q3

REPORT INFORMATION
  Report Type: Spontaneous
  Country: US (occurrence: None)
  Receive Date: 20130715
  Receipt Date: 20130715
  Transmission Date: 20140515
  Serious: Yes (Hospitalization)
  Sender: FDA-Public Use
  Company Number: None

PATIENT
  Age: 50 Year
  Sex: Female

DRUGS (5)
  1. INCIVEK [Suspect]
     Indication: HEPATITIS C
     Route: 048
     Dates: start: 20130426
  2. MAXALT [Concomitant]
  3. ALBUTEROL [Concomitant]
  4. PEGASYS PROCLICK [Concomitant]
  5. RIBAPAK [Concomitant]

REACTIONS (5)
  - Swelling face [None]
  - Local swelling [None]
  - Oedema peripheral [None]
  - Swelling [None]
  - Blood cortisol decreased [None]
